FAERS Safety Report 8734818 (Version 2)
Quarter: 2012Q4

REPORT INFORMATION
  Report Type: 
  Country: US (occurrence: US)
  Receive Date: 20120821
  Receipt Date: 20120905
  Transmission Date: 20130627
  Serious: Yes (Hospitalization, Other)
  Sender: FDA-Public Use
  Company Number: US-BAXTER-2012BAX014408

PATIENT
  Age: 76 None
  Sex: Male

DRUGS (4)
  1. DIANEAL LOW CALCIUM [Suspect]
     Indication: PERITONEAL DIALYSIS
     Route: 033
  2. ONGLYZA [Suspect]
     Indication: DIABETES
     Route: 048
  3. JANUVIA [Suspect]
     Indication: DIABETES
     Route: 048
  4. GLIPIZIDE [Suspect]
     Indication: DIABETES

REACTIONS (2)
  - Blood glucose decreased [Recovered/Resolved]
  - Vascular dementia [Not Recovered/Not Resolved]
